FAERS Safety Report 12282611 (Version 1)
Quarter: 2016Q2

REPORT INFORMATION
  Report Type: Spontaneous
  Country: US (occurrence: US)
  Receive Date: 20160419
  Receipt Date: 20160419
  Transmission Date: 20160815
  Serious: Yes (Other)
  Sender: FDA-Public Use
  Company Number: US-MYLANLABS-2016M1014943

PATIENT

DRUGS (1)
  1. CAPECITABINE TABLETS, USP [Suspect]
     Active Substance: CAPECITABINE
     Indication: BREAST CANCER
     Dosage: 1500MG QAM, 2000MG QPM, FOR 14 DAYS, 7 DAYS OFF
     Route: 048
     Dates: start: 201601, end: 201602

REACTIONS (1)
  - Drug ineffective [Not Recovered/Not Resolved]

NARRATIVE: CASE EVENT DATE: 201602
